FAERS Safety Report 12847515 (Version 1)
Quarter: 2016Q4

REPORT INFORMATION
  Report Type: Spontaneous
  Country: US (occurrence: US)
  Receive Date: 20161013
  Receipt Date: 20161013
  Transmission Date: 20170207
  Serious: Yes (Hospitalization)
  Sender: FDA-Public Use
  Company Number: None

PATIENT
  Age: 54 Year
  Sex: Female
  Weight: 73.8 kg

DRUGS (9)
  1. ZOFRAN [Concomitant]
     Active Substance: ONDANSETRON HYDROCHLORIDE
  2. VITAMIN D [Concomitant]
     Active Substance: CHOLECALCIFEROL
  3. SIMVASTATIN. [Suspect]
     Active Substance: SIMVASTATIN
     Indication: PROPHYLAXIS
     Dates: start: 20120903, end: 20130404
  4. ATIVAN [Concomitant]
     Active Substance: LORAZEPAM
  5. CARNITINE [Concomitant]
     Active Substance: CARNITINE
  6. COQ 10 [Concomitant]
     Active Substance: UBIDECARENONE
  7. CREATINE [Concomitant]
     Active Substance: CREATINE
  8. SIMVASTATIN. [Suspect]
     Active Substance: SIMVASTATIN
     Indication: MYOCARDIAL INFARCTION
     Dates: start: 20120903, end: 20130404
  9. OXYCODONE [Concomitant]
     Active Substance: OXYCODONE

REACTIONS (8)
  - Myopathy [None]
  - Muscle atrophy [None]
  - Nausea [None]
  - Sinusitis [None]
  - Dyspnoea [None]
  - Neuralgia [None]
  - Back pain [None]
  - Neuropathy peripheral [None]

NARRATIVE: CASE EVENT DATE: 20121003
